FAERS Safety Report 8256457-1 (Version None)
Quarter: 2012Q2

REPORT INFORMATION
  Report Type: 
  Country: None (occurrence: None)
  Receive Date: 20120403
  Receipt Date: 20120330
  Transmission Date: 20120825
  Serious: No
  Sender: FDA-Public Use
  Company Number: US-PFIZER INC-2012081726

PATIENT
  Sex: Male

DRUGS (1)
  1. IBUPROFEN (ADVIL) [Suspect]
     Indication: BACK PAIN
     Dosage: UNKNOWN DOSE TWO OR THREE TIMES IN A DAY
     Dates: end: 20120329

REACTIONS (5)
  - FEELING ABNORMAL [None]
  - NAUSEA [None]
  - SLEEP DISORDER [None]
  - ABDOMINAL DISCOMFORT [None]
  - POOR QUALITY DRUG ADMINISTERED [None]
